FAERS Safety Report 5917555-8 (Version None)
Quarter: 2008Q4

REPORT INFORMATION
  Report Type: 
  Country: None (occurrence: None)
  Receive Date: 20081010
  Receipt Date: 20081010
  Transmission Date: 20090506
  Serious: Yes (Hospitalization)
  Sender: FDA-Public Use
  Company Number: None

PATIENT
  Age: 34 Year
  Sex: Male
  Weight: 88.4514 kg

DRUGS (2)
  1. ENBREL [Suspect]
     Indication: PSORIASIS
     Dosage: 25 MG WEEKLY CUTANEOUS
     Route: 003
     Dates: start: 20050101, end: 20080101
  2. ENBREL [Suspect]
     Indication: PSORIATIC ARTHROPATHY
     Dosage: 25 MG WEEKLY CUTANEOUS
     Route: 003
     Dates: start: 20050101, end: 20080101

REACTIONS (1)
  - MENINGITIS ASEPTIC [None]
